FAERS Safety Report 8576020-2 (Version None)
Quarter: 2012Q3

REPORT INFORMATION
  Report Type: 
  Country: None (occurrence: None)
  Receive Date: 20120807
  Receipt Date: 20120802
  Transmission Date: 20120928
  Serious: Yes (Other)
  Sender: FDA-Public Use
  Company Number: JP-BIOMARINP-002711

PATIENT
  Sex: Male

DRUGS (4)
  1. NAGLAZYME [Suspect]
     Route: 041
     Dates: start: 20061107
  2. NAGLAZYME [Suspect]
     Route: 041
     Dates: start: 20091006
  3. ADAPTINOL [Concomitant]
     Indication: PRODUCT USED FOR UNKNOWN INDICATION
  4. NAGLAZYME [Suspect]
     Indication: MUCOPOLYSACCHARIDOSIS VI
     Route: 041
     Dates: start: 20080401, end: 20090929

REACTIONS (2)
  - DEAFNESS [None]
  - INFLUENZA [None]
